FAERS Safety Report 21051054 (Version 1)
Quarter: 2022Q3

REPORT INFORMATION
  Report Type: Spontaneous
  Country: JP (occurrence: JP)
  Receive Date: 20220707
  Receipt Date: 20220707
  Transmission Date: 20221026
  Serious: Yes (Other)
  Sender: FDA-Public Use
  Company Number: JP-TAKEDA-2022TJP056820

PATIENT
  Age: 6 Decade
  Sex: Male

DRUGS (5)
  1. TEDUGLUTIDE [Suspect]
     Active Substance: TEDUGLUTIDE
     Indication: Short-bowel syndrome
     Dosage: 2.3 MILLIGRAM, QD
     Route: 058
     Dates: start: 20220603, end: 20220624
  2. TEDUGLUTIDE [Suspect]
     Active Substance: TEDUGLUTIDE
     Indication: Short-bowel syndrome
     Dosage: 2.3 MILLIGRAM, QD
     Route: 058
     Dates: start: 20220603, end: 20220624
  3. TEDUGLUTIDE [Suspect]
     Active Substance: TEDUGLUTIDE
     Indication: Short-bowel syndrome
     Dosage: 2.3 MILLIGRAM, QD
     Route: 058
     Dates: start: 20220603, end: 20220624
  4. TEDUGLUTIDE [Suspect]
     Active Substance: TEDUGLUTIDE
     Indication: Short-bowel syndrome
     Dosage: 2.3 MILLIGRAM, QD
     Route: 058
     Dates: start: 20220603, end: 20220624
  5. ENTYVIO [Suspect]
     Active Substance: VEDOLIZUMAB
     Indication: Crohn^s disease
     Dosage: 300 MILLIGRAM
     Route: 041
     Dates: start: 202205

REACTIONS (2)
  - Cholecystitis [Not Recovered/Not Resolved]
  - Stoma complication [Not Recovered/Not Resolved]

NARRATIVE: CASE EVENT DATE: 20220624
